FAERS Safety Report 18056448 (Version 1)
Quarter: 2020Q3

REPORT INFORMATION
  Report Type: Spontaneous
  Country: US (occurrence: US)
  Receive Date: 20200722
  Receipt Date: 20200722
  Transmission Date: 20201103
  Serious: Yes (Life-Threatening, Hospitalization, Disabling, Other)
  Sender: FDA-Public Use
  Company Number: US-PURDUE-USA-2020-0158185

PATIENT
  Sex: Male

DRUGS (16)
  1. HYDROCODONE BITARTRATE AND ACETAMINOPHEN [Suspect]
     Active Substance: ACETAMINOPHEN\HYDROCODONE BITARTRATE
     Indication: PAIN
     Dosage: UNKNOWN
     Route: 048
  2. TRAMADOL. [Suspect]
     Active Substance: TRAMADOL
     Indication: PAIN
     Dosage: UNKNOWN
     Route: 048
  3. MORPHINE SULFATE EXTENDED?RELEASE TABLETS (RHODES 74?769, 74?862) [Suspect]
     Active Substance: MORPHINE SULFATE
     Indication: PAIN
     Dosage: UNKNOWN
     Route: 048
  4. CODEINE [Suspect]
     Active Substance: CODEINE
     Indication: PAIN
     Dosage: UNKNOWN
     Route: 065
  5. OXYCODONE HCL CR TABLETS (SIMILAR TO NDA 22?272) [Suspect]
     Active Substance: OXYCODONE HYDROCHLORIDE
     Indication: PAIN
     Dosage: UNKNOWN
     Route: 048
  6. OXYCONTIN [Suspect]
     Active Substance: OXYCODONE HYDROCHLORIDE
     Indication: PAIN
     Dosage: UNKNOWN
     Route: 048
  7. OXYCODONE HCL TABLETS (RHODES 91?490) [Suspect]
     Active Substance: OXYCODONE HYDROCHLORIDE
     Indication: PAIN
     Dosage: UNKNOWN
     Route: 048
  8. HYDROMORPHONE TABLETS [Suspect]
     Active Substance: HYDROMORPHONE
     Indication: PAIN
     Dosage: UNKNOWN
     Route: 048
  9. OXYCODONE/ ACETAMINOPHEN TABLETS [Suspect]
     Active Substance: ACETAMINOPHEN\OXYCODONE HYDROCHLORIDE
     Indication: PAIN
     Dosage: UNKNOWN
     Route: 048
  10. OXYIR [Suspect]
     Active Substance: OXYCODONE HYDROCHLORIDE
     Indication: PAIN
     Dosage: UNKNOWN
     Route: 065
  11. TRAMAL [Suspect]
     Active Substance: TRAMADOL
     Indication: PAIN
     Dosage: 100 MG, UNK
     Route: 065
  12. TRAMOL /00020001/ [Suspect]
     Active Substance: ACETAMINOPHEN
     Indication: PAIN
     Dosage: UNKNOWN
     Route: 065
  13. DILAUDID [Suspect]
     Active Substance: HYDROMORPHONE HYDROCHLORIDE
     Indication: PAIN
     Dosage: UNKNOWN
     Route: 048
  14. BUPRENORPHINE TRANSDERMAL PATCH (SIMILAR TO NDA 21?306) [Suspect]
     Active Substance: BUPRENORPHINE
     Indication: PAIN
     Dosage: UNKNOWN
     Route: 062
  15. MS CONTIN [Suspect]
     Active Substance: MORPHINE SULFATE
     Indication: PAIN
     Dosage: UNKNOWN
     Route: 048
  16. MSIR [Suspect]
     Active Substance: MORPHINE SULFATE
     Indication: PAIN
     Dosage: UNKNOWN
     Route: 065

REACTIONS (46)
  - Suicide attempt [Unknown]
  - Overdose [Unknown]
  - Generalised anxiety disorder [Unknown]
  - Product prescribing issue [Unknown]
  - Unevaluable event [Unknown]
  - Hypokinesia [Unknown]
  - Paranoia [Unknown]
  - Post-traumatic stress disorder [Unknown]
  - Emotional distress [Unknown]
  - Social avoidant behaviour [Unknown]
  - Dysstasia [Unknown]
  - Suicidal ideation [Unknown]
  - Road traffic accident [Unknown]
  - Paralysis [Unknown]
  - Cerebrospinal fluid leakage [Unknown]
  - Amnesia [Unknown]
  - Major depression [Unknown]
  - Face injury [Unknown]
  - Deep vein thrombosis [Unknown]
  - Drug withdrawal syndrome [Unknown]
  - Gait disturbance [Unknown]
  - Nerve injury [Unknown]
  - Head injury [Unknown]
  - Self-medication [Unknown]
  - Drug tolerance [Unknown]
  - Pain [Unknown]
  - Injury [Unknown]
  - Panic disorder [Unknown]
  - Anger [Unknown]
  - Feeling of despair [Unknown]
  - Economic problem [Unknown]
  - Suicide threat [Unknown]
  - Concussion [Unknown]
  - Lumbar vertebral fracture [Unknown]
  - Arterial occlusive disease [Unknown]
  - Drug dependence [Unknown]
  - Drug abuse [Unknown]
  - Loss of consciousness [Unknown]
  - Neuropathy peripheral [Unknown]
  - Illness [Unknown]
  - Disability [Unknown]
  - Mental impairment [Unknown]
  - Ankle fracture [Unknown]
  - Fear [Unknown]
  - Sitting disability [Unknown]
  - Fall [Unknown]

NARRATIVE: CASE EVENT DATE: 2000
